FAERS Safety Report 21076485 (Version 1)
Quarter: 2022Q3

REPORT INFORMATION
  Report Type: Spontaneous
  Country: GB (occurrence: GB)
  Receive Date: 20220713
  Receipt Date: 20220713
  Transmission Date: 20221027
  Serious: No
  Sender: FDA-Public Use
  Company Number: GB-GLAXOSMITHKLINE-GB2022EME105209

PATIENT

DRUGS (1)
  1. SOTROVIMAB [Suspect]
     Active Substance: SOTROVIMAB
     Indication: Product used for unknown indication
     Dosage: UNK, SALINE 100ML, 222A16G21)
     Route: 042

REACTIONS (4)
  - Cough [Recovered/Resolved]
  - Ear disorder [Recovered/Resolved]
  - Paraesthesia [Recovered/Resolved]
  - Symptom recurrence [Recovered/Resolved]
